FAERS Safety Report 4625233-0 (Version None)
Quarter: 2005Q2

REPORT INFORMATION
  Report Type: 
  Country: None (occurrence: None)
  Receive Date: 20050401
  Receipt Date: 20050309
  Transmission Date: 20051028
  Serious: Yes (Hospitalization)
  Sender: FDA-Public Use
  Company Number: JP-ROCHE-398616

PATIENT
  Age: 64 Year
  Sex: Female

DRUGS (6)
  1. TAMIFLU [Suspect]
     Route: 048
     Dates: start: 20050308, end: 20050308
  2. TAMIFLU [Suspect]
     Route: 048
     Dates: start: 20050307, end: 20050307
  3. UNSPECIFIED DRUG [Concomitant]
     Indication: DRUG USE FOR UNKNOWN INDICATION
     Dosage: DRUG NAME REPORTED AS ^TOWATHIEM^
     Route: 048
     Dates: start: 20050307, end: 20050312
  4. FLOMOX [Concomitant]
     Indication: DRUG USE FOR UNKNOWN INDICATION
     Route: 048
     Dates: start: 20050307, end: 20050312
  5. TOWAZUREN [Concomitant]
     Indication: DRUG USE FOR UNKNOWN INDICATION
     Route: 048
     Dates: start: 20050307, end: 20050312
  6. HUSCODE [Concomitant]
     Indication: DRUG USE FOR UNKNOWN INDICATION
     Route: 048
     Dates: start: 20050307, end: 20050309

REACTIONS (2)
  - ERYTHEMA [None]
  - INFLUENZA [None]
